FAERS Safety Report 4620799-9 (Version None)
Quarter: 2005Q1

REPORT INFORMATION
  Report Type: 
  Country: None (occurrence: None)
  Receive Date: 20050325
  Receipt Date: 20050313
  Transmission Date: 20050727
  Serious: Yes (Other)
  Sender: FDA-Public Use
  Company Number: 2005044694

PATIENT
  Age: 60 Year
  Sex: Male
  Weight: 88.4514 kg

DRUGS (2)
  1. NEURONTIN [Suspect]
     Indication: NEUROPATHY PERIPHERAL
     Dosage: 600 MG (600 MG, 1 IN 1 D), ORAL
     Route: 048
  2. ACETAMINOPHEN [Concomitant]

REACTIONS (4)
  - ABASIA [None]
  - FEELING ABNORMAL [None]
  - HYPOAESTHESIA [None]
  - PAIN [None]
